FAERS Safety Report 7511389-9 (Version None)
Quarter: 2011Q2

REPORT INFORMATION
  Report Type: 
  Country: None (occurrence: None)
  Receive Date: 20110519
  Receipt Date: 20110504
  Transmission Date: 20111010
  Serious: Yes (Hospitalization)
  Sender: FDA-Public Use
  Company Number: AUR-APL-2011-01111

PATIENT
  Age: 74 Year
  Sex: Female
  Weight: 54.4 kg

DRUGS (11)
  1. SIMVASTATIN [Suspect]
     Indication: HYPERLIPIDAEMIA
     Dosage: 40 MG, DAILY, ORAL;
     Route: 048
     Dates: end: 20110223
  2. PANTOPRAZOLE [Concomitant]
  3. PENTAERYTHRITOL TETRANITRATE [Concomitant]
  4. ZOLEDRONIC ACID [Concomitant]
  5. ASPIRIN [Concomitant]
  6. VERAPAMIL [Concomitant]
  7. CALCILAC KT [Concomitant]
  8. PREDNISOLONE [Suspect]
     Indication: TEMPORAL ARTERITIS
     Dosage: 100 MG, DAILY, ORAL; 25MG, DAILY, ORAL; 17.5 MG, DAILY, ORAL;
     Route: 048
     Dates: start: 20110223
  9. PREDNISOLONE [Suspect]
     Indication: TEMPORAL ARTERITIS
     Dosage: 100 MG, DAILY, ORAL; 25MG, DAILY, ORAL; 17.5 MG, DAILY, ORAL;
     Route: 048
     Dates: start: 20101001
  10. PREDNISOLONE [Suspect]
     Indication: TEMPORAL ARTERITIS
     Dosage: 100 MG, DAILY, ORAL; 25MG, DAILY, ORAL; 17.5 MG, DAILY, ORAL;
     Route: 048
     Dates: end: 20110223
  11. ENALAPRIL MALEATE [Concomitant]

REACTIONS (13)
  - MYOPATHY [None]
  - ALANINE AMINOTRANSFERASE INCREASED [None]
  - WHITE BLOOD CELL COUNT INCREASED [None]
  - VISUAL ACUITY REDUCED [None]
  - BLOOD LACTATE DEHYDROGENASE INCREASED [None]
  - MUSCLE ATROPHY [None]
  - MUSCULAR WEAKNESS [None]
  - AGEUSIA [None]
  - GAIT DISTURBANCE [None]
  - IATROGENIC INJURY [None]
  - BLOOD CREATININE INCREASED [None]
  - BLOOD UREA INCREASED [None]
  - CUSHING'S SYNDROME [None]
